FAERS Safety Report 23053659 (Version 1)
Quarter: 2023Q4

REPORT INFORMATION
  Report Type: Spontaneous
  Country: US (occurrence: US)
  Receive Date: 20231011
  Receipt Date: 20231011
  Transmission Date: 20240110
  Serious: No
  Sender: FDA-Public Use
  Company Number: US-ABBVIE-5443901

PATIENT
  Sex: Female

DRUGS (1)
  1. LATISSE [Suspect]
     Active Substance: BIMATOPROST
     Indication: Growth of eyelashes
     Route: 061
     Dates: start: 2018

REACTIONS (2)
  - Drug ineffective [Unknown]
  - Madarosis [Unknown]

NARRATIVE: CASE EVENT DATE: 20230101
